FAERS Safety Report 4358945-7 (Version None)
Quarter: 2004Q2

REPORT INFORMATION
  Report Type: 
  Country: None (occurrence: None)
  Receive Date: 20040512
  Receipt Date: 20040427
  Transmission Date: 20050107
  Serious: Yes (Other)
  Sender: FDA-Public Use
  Company Number: US_0405102705

PATIENT
  Age: 83 Year
  Sex: Female

DRUGS (1)
  1. EVISTA [Suspect]

REACTIONS (4)
  - CONDITION AGGRAVATED [None]
  - LUMBAR VERTEBRAL FRACTURE [None]
  - OSTEOPOROTIC FRACTURE [None]
  - PELVIC FRACTURE [None]
